APPROVED DRUG PRODUCT: SUMATRIPTAN SUCCINATE
Active Ingredient: SUMATRIPTAN SUCCINATE
Strength: EQ 100MG BASE
Dosage Form/Route: TABLET;ORAL
Application: A200263 | Product #003 | TE Code: AB
Applicant: ZHEJIANG BAYSIDE BIOTECH CO LTD
Approved: Jun 19, 2012 | RLD: No | RS: No | Type: RX